FAERS Safety Report 5309828-7 (Version None)
Quarter: 2007Q2

REPORT INFORMATION
  Report Type: 
  Country: None (occurrence: None)
  Receive Date: 20070427
  Receipt Date: 20070423
  Transmission Date: 20071010
  Serious: Yes (Hospitalization)
  Sender: FDA-Public Use
  Company Number: JP-ELI_LILLY_AND_COMPANY-JP200704005418

PATIENT
  Age: 40 Year
  Sex: Female

DRUGS (4)
  1. CEFACLOR [Suspect]
     Dates: start: 20060904
  2. LOXOPROFEN SODIUM [Concomitant]
     Dates: start: 20060904
  3. DOMPERIDONE [Concomitant]
     Dates: start: 20060904
  4. INDOMETHACIN [Concomitant]
     Dates: start: 20060904

REACTIONS (4)
  - LIVER DISORDER [None]
  - PERICARDIAL EFFUSION [None]
  - PLATELET COUNT DECREASED [None]
  - PLEURAL EFFUSION [None]
